FAERS Safety Report 21960448 (Version 4)
Quarter: 2023Q1

REPORT INFORMATION
  Report Type: Spontaneous
  Country: LT (occurrence: LT)
  Receive Date: 20230207
  Receipt Date: 20230317
  Transmission Date: 20230418
  Serious: Yes (Life-Threatening, Hospitalization, Other)
  Sender: FDA-Public Use
  Company Number: LT-Orion Corporation ORION PHARMA-OLAA2023-0001

PATIENT
  Age: 43 Year
  Sex: Male

DRUGS (39)
  1. OLANZAPINE [Suspect]
     Active Substance: OLANZAPINE
     Indication: Schizophrenia
     Dosage: 20 MILLIGRAM, ONCE A DAY
     Route: 065
     Dates: start: 2007
  2. OLANZAPINE [Suspect]
     Active Substance: OLANZAPINE
     Dosage: 10 MILLIGRAM, ONCE A DAY
     Route: 065
     Dates: start: 2007
  3. OLANZAPINE [Suspect]
     Active Substance: OLANZAPINE
     Dosage: 15 MILLIGRAM, ONCE A DAY
     Route: 065
     Dates: start: 2007
  4. OLANZAPINE [Suspect]
     Active Substance: OLANZAPINE
     Dosage: 10 MILLIGRAM, ONCE A DAY
     Route: 048
     Dates: start: 2015
  5. OLANZAPINE [Suspect]
     Active Substance: OLANZAPINE
     Dosage: 10 MILLIGRAM, ONCE A DAY
     Route: 065
     Dates: start: 2019
  6. OLANZAPINE [Suspect]
     Active Substance: OLANZAPINE
     Dosage: 20 MILLIGRAM, ONCE A DAY
     Route: 048
     Dates: start: 201901
  7. OLANZAPINE [Suspect]
     Active Substance: OLANZAPINE
     Dosage: 10 MILLIGRAM, ONCE A DAY
     Route: 065
     Dates: start: 201901
  8. CHLORPROMAZINE [Suspect]
     Active Substance: CHLORPROMAZINE
     Indication: Schizophrenia
     Dosage: UNK (SOLUTION 2.0 INTRAMUSCULARLY)
     Route: 030
     Dates: start: 201904
  9. CHLORPROMAZINE [Suspect]
     Active Substance: CHLORPROMAZINE
     Dosage: UNK MILLIGRAM
     Route: 065
  10. CHLORPROMAZINE [Suspect]
     Active Substance: CHLORPROMAZINE
     Dosage: 2 MILLILITER (SOLUTION)
     Route: 065
  11. CHLORPROMAZINE [Suspect]
     Active Substance: CHLORPROMAZINE
     Dosage: UNK
     Route: 065
  12. CHLORPROMAZINE [Suspect]
     Active Substance: CHLORPROMAZINE
     Dosage: 50 MILLIGRAM (50 MILLIGRAM/DAY ADMINISTERED ON DEMAND )
     Route: 065
  13. CHLORPROMAZINE [Suspect]
     Active Substance: CHLORPROMAZINE
     Dosage: UNK UNK, ONCE A DAY (UP TO 50 MG/DAY WERE ADMINISTERED ADDITIONALLY ON DEMAND )
     Route: 065
  14. CHLORPROMAZINE [Suspect]
     Active Substance: CHLORPROMAZINE
     Indication: Schizophrenia
     Dosage: 2 MILLILITER, ONCE A DAY
     Route: 065
     Dates: start: 2019
  15. CHLORPROMAZINE [Suspect]
     Active Substance: CHLORPROMAZINE
     Indication: Psychotic disorder
     Dosage: 2 MILLILITER, ONCE A DAY
     Route: 030
     Dates: start: 201901
  16. CHLORPROMAZINE [Suspect]
     Active Substance: CHLORPROMAZINE
     Indication: Schizophrenia
     Dosage: 50 MILLIGRAM (50 MILLIGRAM/DAY ADMINISTERED ON DEMAND)
     Route: 065
  17. CHLORPROMAZINE [Suspect]
     Active Substance: CHLORPROMAZINE
     Dosage: UNK (UNK,SOLUTION 2.0 INTRAMUSCULARLY)
     Route: 030
     Dates: start: 201904
  18. CHLORPROTHIXENE [Suspect]
     Active Substance: CHLORPROTHIXENE
     Indication: Psychotic disorder
     Dosage: 50 MILLIGRAM, ONCE A DAY
     Route: 065
     Dates: start: 2019
  19. CHLORPROTHIXENE [Suspect]
     Active Substance: CHLORPROTHIXENE
     Indication: Schizophrenia
     Dosage: 50 MILLIGRAM, ONCE A DAY
     Route: 065
     Dates: start: 201904
  20. CLOZAPINE [Suspect]
     Active Substance: CLOZAPINE
     Indication: Schizophrenia
     Dosage: 150 MILLIGRAM, ONCE A DAY
     Route: 065
  21. CLOZAPINE [Suspect]
     Active Substance: CLOZAPINE
     Dosage: 200 MILLIGRAM, ONCE A DAY
     Route: 065
  22. HALOPERIDOL DECANOATE [Suspect]
     Active Substance: HALOPERIDOL DECANOATE
     Indication: Schizophrenia
     Dosage: 70.52 DOSAGE FORM (70.52 DOSAGE FORM, MONTHLY (1/M) )
     Route: 030
     Dates: start: 2018
  23. HALOPERIDOL DECANOATE [Suspect]
     Active Substance: HALOPERIDOL DECANOATE
     Indication: Affective disorder
     Dosage: UNK, ONCE A DAY
     Route: 030
     Dates: start: 201901
  24. HALOPERIDOL DECANOATE [Suspect]
     Active Substance: HALOPERIDOL DECANOATE
     Indication: Mental disorder
     Dosage: 1 %, TWO TIMES A DAY (0.5  % 1.0)
     Route: 030
     Dates: start: 201901
  25. HALOPERIDOL DECANOATE [Suspect]
     Active Substance: HALOPERIDOL DECANOATE
     Dosage: 1 %, ONCE A DAY (0.5% 1.0, BID )
     Route: 030
     Dates: start: 201901
  26. HALOPERIDOL DECANOATE [Suspect]
     Active Substance: HALOPERIDOL DECANOATE
     Dosage: UNK, ONCE A DAY
     Route: 030
     Dates: start: 201904
  27. HALOPERIDOL DECANOATE [Suspect]
     Active Substance: HALOPERIDOL DECANOATE
     Dosage: 70.52 MILLIGRAM/MILILITER
     Route: 030
     Dates: start: 201904
  28. HALOPERIDOL DECANOATE [Suspect]
     Active Substance: HALOPERIDOL DECANOATE
     Dosage: UNK
     Route: 065
  29. HALOPERIDOL DECANOATE [Suspect]
     Active Substance: HALOPERIDOL DECANOATE
     Dosage: 50 MILLIGRAM (3 WEEK)
     Route: 065
  30. HALOPERIDOL DECANOATE [Suspect]
     Active Substance: HALOPERIDOL DECANOATE
     Dosage: UNK (70.52 MG/MLFROM APRIL ONWARDS)
     Route: 065
  31. HALOPERIDOL DECANOATE [Suspect]
     Active Substance: HALOPERIDOL DECANOATE
     Dosage: 50 MILLIGRAM
     Route: 042
  32. HALOPERIDOL DECANOATE [Suspect]
     Active Substance: HALOPERIDOL DECANOATE
     Dosage: 50 MILLIGRAM (1 MONTH)
     Route: 030
  33. CLOZAPINE [Suspect]
     Active Substance: CLOZAPINE
     Indication: Schizophrenia
     Dosage: 150 MILLIGRAM, ONCE A DAY
     Route: 048
     Dates: start: 2007, end: 2007
  34. CLOZAPINE [Suspect]
     Active Substance: CLOZAPINE
     Dosage: 200 MILLIGRAM, ONCE A DAY
     Route: 048
     Dates: start: 2018
  35. TRIHEXYPHENIDYL [Suspect]
     Active Substance: TRIHEXYPHENIDYL
     Indication: Schizophrenia
     Dosage: UNK
     Route: 065
  36. TRIHEXYPHENIDYL [Suspect]
     Active Substance: TRIHEXYPHENIDYL
     Indication: Extrapyramidal disorder
     Dosage: 6 MILLIGRAM, ONCE A DAY (6 MILLIGRAM, QD )
     Route: 065
     Dates: start: 2007
  37. TRIHEXYPHENIDYL [Suspect]
     Active Substance: TRIHEXYPHENIDYL
     Indication: Parkinson^s disease
     Dosage: UNK UNK, ONCE A DAY (2-6MG)
     Route: 065
     Dates: start: 201904
  38. TRIHEXYPHENIDYL [Suspect]
     Active Substance: TRIHEXYPHENIDYL
     Dosage: 6 MILLIGRAM, ONCE A DAY
     Route: 065
     Dates: start: 201904
  39. TRIHEXYPHENIDYL [Suspect]
     Active Substance: TRIHEXYPHENIDYL
     Dosage: 2 MILLIGRAM, ONCE A DAY
     Route: 065
     Dates: start: 201904

REACTIONS (15)
  - Drug intolerance [Unknown]
  - Ileus paralytic [Unknown]
  - Intestinal pseudo-obstruction [Unknown]
  - Megacolon [Unknown]
  - Agranulocytosis [Unknown]
  - Leukopenia [Unknown]
  - Carcinoid tumour in the large intestine [Unknown]
  - Gastric ulcer [Unknown]
  - Hepatitis [Unknown]
  - Gastrointestinal carcinoma [Unknown]
  - Anaemia vitamin B12 deficiency [Unknown]
  - Cholelithiasis [Unknown]
  - Gastritis [Unknown]
  - Off label use [Unknown]
  - Product use in unapproved indication [Unknown]

NARRATIVE: CASE EVENT DATE: 20190101
